FAERS Safety Report 24629944 (Version 1)
Quarter: 2024Q4

REPORT INFORMATION
  Report Type: Spontaneous
  Country: JP (occurrence: JP)
  Receive Date: 20241118
  Receipt Date: 20241118
  Transmission Date: 20250115
  Serious: Yes (Death, Hospitalization)
  Sender: AMGEN
  Company Number: JP-DSJP-DSJ-2024-101759

PATIENT
  Age: 65 Year
  Sex: Female

DRUGS (10)
  1. BEVACIZUMAB [Suspect]
     Active Substance: BEVACIZUMAB
     Indication: HER2 mutant non-small cell lung cancer
     Dosage: UNK
     Route: 065
  2. ENHERTU [Suspect]
     Active Substance: FAM-TRASTUZUMAB DERUXTECAN-NXKI
     Indication: HER2 mutant non-small cell lung cancer
     Dosage: 5.4 MILLIGRAM/KILOGRAM, Q3WK
     Route: 041
     Dates: start: 20240112, end: 20240112
  3. ENHERTU [Suspect]
     Active Substance: FAM-TRASTUZUMAB DERUXTECAN-NXKI
     Dosage: 5.4 MILLIGRAM/KILOGRAM, Q3WK
     Route: 041
     Dates: start: 20240206, end: 20240206
  4. ENHERTU [Suspect]
     Active Substance: FAM-TRASTUZUMAB DERUXTECAN-NXKI
     Dosage: 5.4 MILLIGRAM/KILOGRAM, Q3WK
     Route: 041
     Dates: start: 20240227, end: 20240227
  5. PALONOSETRON [Concomitant]
     Active Substance: PALONOSETRON
     Indication: Gastrointestinal disorder prophylaxis
     Dosage: 0.75 MG, QD
     Route: 042
     Dates: start: 20240110
  6. APREPITANT [Concomitant]
     Active Substance: APREPITANT
     Indication: Gastrointestinal disorder prophylaxis
     Dosage: 125 MG, QD
     Route: 048
     Dates: start: 20240110
  7. TRESIBA [Concomitant]
     Active Substance: INSULIN DEGLUDEC
     Indication: Type 1 diabetes mellitus
     Dosage: STRENGTH 300, 5, 4, 7 UNITS, TID
     Route: 058
  8. NOVORAPID [Concomitant]
     Active Substance: INSULIN ASPART
     Indication: Type 1 diabetes mellitus
     Dosage: STRENGTH 300, 15 UNITS, QD
     Route: 058
  9. CARBOPLATIN [Concomitant]
     Active Substance: CARBOPLATIN
     Indication: HER2 mutant non-small cell lung cancer
     Dosage: UNK
     Route: 065
  10. PEMETREXED [Concomitant]
     Active Substance: PEMETREXED
     Indication: HER2 mutant non-small cell lung cancer
     Dosage: UNK
     Route: 065

REACTIONS (8)
  - Choking [Fatal]
  - Interstitial lung disease [Recovering/Resolving]
  - Malaise [Recovering/Resolving]
  - Decreased appetite [Not Recovered/Not Resolved]
  - Nausea [Recovering/Resolving]
  - Alopecia [Not Recovered/Not Resolved]
  - Aspartate aminotransferase increased [Recovering/Resolving]
  - Alanine aminotransferase increased [Recovering/Resolving]

NARRATIVE: CASE EVENT DATE: 20240101
